FAERS Safety Report 8355027-4 (Version None)
Quarter: 2012Q2

REPORT INFORMATION
  Report Type: 
  Country: None (occurrence: None)
  Receive Date: 20120511
  Receipt Date: 20120503
  Transmission Date: 20120825
  Serious: Yes (Hospitalization)
  Sender: FDA-Public Use
  Company Number: US-ROXANE LABORATORIES, INC.-2012-RO-01180RO

PATIENT
  Sex: Male
  Weight: 12 kg

DRUGS (7)
  1. TOPAMAX [Suspect]
     Indication: CONVULSION
     Dosage: 105 MG
     Route: 048
     Dates: start: 20110620
  2. KEPPRA [Concomitant]
     Dosage: 800 MG
     Route: 048
  3. DIAZEPAM [Suspect]
     Indication: CONVULSION
     Dosage: 6 MG
     Route: 048
     Dates: start: 20120202
  4. POLYVISOL [Concomitant]
     Route: 048
  5. DEPAKOTE [Suspect]
     Indication: CONVULSION
     Dosage: 375 MG
     Route: 048
     Dates: start: 20120209
  6. RANITIDINE [Concomitant]
     Route: 048
     Dates: start: 20090101
  7. MELATONIN [Concomitant]
     Dosage: 5 MG
     Route: 048
     Dates: start: 20090101

REACTIONS (2)
  - DEHYDRATION [None]
  - LETHARGY [None]
